FAERS Safety Report 8117743-9 (Version None)
Quarter: 2012Q1

REPORT INFORMATION
  Report Type: 
  Country: None (occurrence: None)
  Receive Date: 20120203
  Receipt Date: 20120203
  Transmission Date: 20120608
  Serious: Yes (Other)
  Sender: FDA-Public Use
  Company Number: None

PATIENT
  Sex: Female
  Weight: 55.7924 kg

DRUGS (1)
  1. LAMOTRIGINE [Suspect]
     Indication: BIPOLAR DISORDER
     Dosage: 100 MG ONCE DAILY ORAL
     Route: 048
     Dates: start: 20120201

REACTIONS (7)
  - HYPERSENSITIVITY [None]
  - LIP SWELLING [None]
  - DYSPNOEA [None]
  - RASH [None]
  - VISION BLURRED [None]
  - EYELID OEDEMA [None]
  - PRODUCT SUBSTITUTION ISSUE [None]
